FAERS Safety Report 7132411-8 (Version None)
Quarter: 2010Q4

REPORT INFORMATION
  Report Type: 
  Country: None (occurrence: None)
  Receive Date: 20101130
  Receipt Date: 20101130
  Transmission Date: 20110411
  Serious: Yes (Other)
  Sender: FDA-Public Use
  Company Number: None

PATIENT
  Sex: Female
  Weight: 58.9676 kg

DRUGS (1)
  1. NITROFURANTOINMONO-MCR 100 MG [Suspect]
     Indication: CYSTITIS
     Dosage: 100 MG TWICE A DAY 10 DAYS
     Dates: start: 20100426, end: 20100501

REACTIONS (2)
  - PRURITUS [None]
  - RASH MACULAR [None]
